FAERS Safety Report 20539207 (Version 1)
Quarter: 2022Q1

REPORT INFORMATION
  Report Type: Spontaneous
  Country: AU (occurrence: AU)
  Receive Date: 20220302
  Receipt Date: 20220302
  Transmission Date: 20220424
  Serious: Yes (Other)
  Sender: FDA-Public Use
  Company Number: AU-JNJFOC-20211044427

PATIENT
  Age: 39 Year
  Sex: Female

DRUGS (1)
  1. HALDOL DECANOATE [Suspect]
     Active Substance: HALOPERIDOL DECANOATE
     Indication: Product used for unknown indication
     Route: 065

REACTIONS (6)
  - Hyperthyroidism [Unknown]
  - Anxiety [Unknown]
  - Fatigue [Unknown]
  - Hyperhidrosis [Unknown]
  - Insomnia [Unknown]
  - Tremor [Recovered/Resolved]

NARRATIVE: CASE EVENT DATE: 20210303
